FAERS Safety Report 20611699 (Version 1)
Quarter: 2022Q1

REPORT INFORMATION
  Report Type: Spontaneous
  Country: NL (occurrence: NL)
  Receive Date: 20220318
  Receipt Date: 20220318
  Transmission Date: 20220423
  Serious: Yes (Other)
  Sender: FDA-Public Use
  Company Number: None

PATIENT
  Age: 17 Year
  Sex: Male
  Weight: 73 kg

DRUGS (5)
  1. CLOZAPINE [Suspect]
     Active Substance: CLOZAPINE
     Indication: Psychotic disorder
     Dosage: 200 MILLIGRAM DAILY; CLOZAPINE TABLET 100MG / BRAND NAME NOT SPECIFIED,THERAPY START DATE ASKU, THER
     Route: 065
  2. CLOZAPINE [Suspect]
     Active Substance: CLOZAPINE
     Dosage: 300 MILLIGRAM DAILY;
     Route: 065
     Dates: start: 20220121, end: 20220128
  3. MOVICOLON [Concomitant]
     Active Substance: POLYETHYLENE GLYCOL 3350\POTASSIUM CHLORIDE\SODIUM BICARBONATE\SODIUM CHLORIDE
     Dosage: POWDER FOR DRINK,THERAPY START DATE ASKU, THERAPY END DATE ASKU,MACROGOL/SALTS PDR V BEVERAGE (MOVIC
  4. LORAZEPAM [Concomitant]
     Active Substance: LORAZEPAM
     Dosage: LORAZEPAM TABLET 1MG / BRAND NAME NOT SPECIFIED, 1 MG,THERAPY START DATE ASKU, THERAPY END DATE ASKU
  5. CHOLECALCIFEROL [Concomitant]
     Active Substance: CHOLECALCIFEROL
     Dosage: THERAPY START DATE ASKU, THERAPY END DATE ASKU,,COLECALCIFEROL CAPSULE 800IU / BRAND NAME NOT SPECIF

REACTIONS (1)
  - Generalised tonic-clonic seizure [Recovered/Resolved]

NARRATIVE: CASE EVENT DATE: 20220127
